FAERS Safety Report 7798951-3 (Version None)
Quarter: 2011Q4

REPORT INFORMATION
  Report Type: 
  Country: None (occurrence: None)
  Receive Date: 20111006
  Receipt Date: 20110927
  Transmission Date: 20120403
  Serious: Yes (Hospitalization, Other)
  Sender: FDA-Public Use
  Company Number: AU-US-EMD SERONO, INC.-7085885

PATIENT
  Sex: Female
  Weight: 56 kg

DRUGS (4)
  1. OVIDREL [Concomitant]
     Indication: IN VITRO FERTILISATION
     Route: 058
     Dates: start: 20110709, end: 20110709
  2. CETROTIDE [Concomitant]
     Indication: IN VITRO FERTILISATION
     Route: 058
     Dates: start: 20110703, end: 20110708
  3. GONAL-F [Suspect]
     Indication: PRODUCT USED FOR UNKNOWN INDICATION
  4. CRINONE [Concomitant]
     Indication: IN VITRO FERTILISATION
     Dates: start: 20110712, end: 20110727

REACTIONS (3)
  - ECTOPIC PREGNANCY [None]
  - ABDOMINAL PAIN LOWER [None]
  - VAGINAL HAEMORRHAGE [None]
